FAERS Safety Report 5397829-2 (Version None)
Quarter: 2007Q3

REPORT INFORMATION
  Report Type: 
  Country: None (occurrence: None)
  Receive Date: 20070724
  Receipt Date: 20070724
  Transmission Date: 20080115
  Serious: No
  Sender: FDA-Public Use
  Company Number: None

PATIENT
  Age: 9 Year
  Sex: Male

DRUGS (1)
  1. SINGULAIR [Suspect]
     Dates: start: 20051201

REACTIONS (4)
  - DRUG HYPERSENSITIVITY [None]
  - PRURITUS [None]
  - SKIN CHAPPED [None]
  - SKIN EXFOLIATION [None]
